FAERS Safety Report 12986683 (Version 1)
Quarter: 2016Q4

REPORT INFORMATION
  Report Type: Report from Study
  Country: FR (occurrence: FR)
  Receive Date: 20161130
  Receipt Date: 20161130
  Transmission Date: 20170207
  Serious: Yes (Other)
  Sender: FDA-Public Use
  Company Number: FR-AMGEN-FRANI2016118614

PATIENT
  Age: 69 Year
  Sex: Female

DRUGS (8)
  1. PENTACARINAT [Concomitant]
     Active Substance: PENTAMIDINE ISETHIONATE
     Dosage: UNK
  2. ZARZIO [Concomitant]
     Active Substance: FILGRASTIM
     Dosage: UNK
  3. REVLIMID [Suspect]
     Active Substance: LENALIDOMIDE
     Indication: PLASMA CELL MYELOMA
     Dosage: 15 MG PER DAY, FROM DAY ONE TO DAY TWENTY ONE
     Route: 048
     Dates: start: 20160809
  4. DEXAMETHASONE. [Suspect]
     Active Substance: DEXAMETHASONE
     Indication: PLASMA CELL MYELOMA
     Dosage: 20 MG PER DAY, ON DAY ONE, EIGHT, FIFTEEN AND TWENTY TWO
     Route: 048
     Dates: start: 20160809
  5. CARFILZOMIB [Suspect]
     Active Substance: CARFILZOMIB
     Dosage: 27 MG/M2, ON DAY EIGHT, NINE, FIFTEEN, AND SIXTEEN
     Route: 065
  6. CARFILZOMIB [Suspect]
     Active Substance: CARFILZOMIB
     Indication: PLASMA CELL MYELOMA
     Dosage: 20 MG/M2, ON DAY ONE AND DAY TWO
     Route: 065
     Dates: start: 20160809
  7. DEXAMETHASONE. [Suspect]
     Active Substance: DEXAMETHASONE
     Dosage: 40 MG, UNK
     Route: 048
  8. REVLIMID [Suspect]
     Active Substance: LENALIDOMIDE
     Dosage: 25 MG, UNK
     Route: 048

REACTIONS (10)
  - Asthenia [Recovered/Resolved]
  - Glomerular filtration rate decreased [Recovering/Resolving]
  - Sleep disorder [Unknown]
  - Diarrhoea [Unknown]
  - Pain in extremity [Unknown]
  - Cytopenia [Recovered/Resolved]
  - Intestinal transit time abnormal [Unknown]
  - Abdominal pain [Unknown]
  - Dyspnoea exertional [Unknown]
  - Flushing [Unknown]

NARRATIVE: CASE EVENT DATE: 2016
